FAERS Safety Report 17938383 (Version 1)
Quarter: 2020Q2

REPORT INFORMATION
  Report Type: Spontaneous
  Country: US (occurrence: US)
  Receive Date: 20200624
  Receipt Date: 20200624
  Transmission Date: 20200714
  Serious: Yes (Other)
  Sender: FDA-Public Use
  Company Number: US-PFIZER INC-2020243152

PATIENT
  Sex: Female

DRUGS (1)
  1. XELJANZ XR [Suspect]
     Active Substance: TOFACITINIB CITRATE
     Dosage: 11 MG
     Dates: end: 20200620

REACTIONS (8)
  - Neuropathy peripheral [Unknown]
  - Burning sensation [Unknown]
  - Gastrooesophageal reflux disease [Unknown]
  - Herpes zoster [Unknown]
  - Rash [Unknown]
  - Dyspepsia [Unknown]
  - Headache [Unknown]
  - Tooth infection [Unknown]
